FAERS Safety Report 24857704 (Version 2)
Quarter: 2025Q1

REPORT INFORMATION
  Report Type: Spontaneous
  Country: JP (occurrence: JP)
  Receive Date: 20250117
  Receipt Date: 20250218
  Transmission Date: 20250409
  Serious: Yes (Hospitalization, Other)
  Sender: PFIZER
  Company Number: JP-PFIZER INC-PV202500006694

PATIENT
  Age: 85 Year
  Sex: Male
  Weight: 62.3 kg

DRUGS (8)
  1. VYNDAQEL [Suspect]
     Active Substance: TAFAMIDIS MEGLUMINE
     Indication: Cardiac amyloidosis
     Route: 048
     Dates: end: 20240719
  2. TORSEMIDE [Concomitant]
     Active Substance: TORSEMIDE
     Dosage: 8 MG, 1X/DAY, IN THE MORNING
  3. EPLERENONE [Concomitant]
     Active Substance: EPLERENONE
     Dosage: 50 MG, 1X/DAY, IN THE MORNING
  4. EDOXABAN TOSYLATE [Concomitant]
     Active Substance: EDOXABAN TOSYLATE
     Dosage: 60 MG, 1X/DAY, IN THE MORNING
  5. TRICHLORMETHIAZIDE [Concomitant]
     Active Substance: TRICHLORMETHIAZIDE
     Dosage: 1 MG, 1X/DAY, IN THE MORNING
  6. TOLVAPTAN [Concomitant]
     Active Substance: TOLVAPTAN
     Dosage: 15 MG, 1X/DAY, IN THE MORNING
  7. JARDIANCE [Concomitant]
     Active Substance: EMPAGLIFLOZIN
     Dosage: 10 MG, 1X/DAY, IN THE MORNING
  8. PHENOBARBITAL [Concomitant]
     Active Substance: PHENOBARBITAL
     Indication: Epilepsy
     Dosage: 80 MG, 2X/DAY, IN THE MORNING AND EVENING

REACTIONS (1)
  - Cardiac failure [Recovered/Resolved]

NARRATIVE: CASE EVENT DATE: 20240902
